FAERS Safety Report 14038301 (Version 2)
Quarter: 2017Q4

REPORT INFORMATION
  Report Type: Spontaneous
  Country: US (occurrence: US)
  Receive Date: 20171004
  Receipt Date: 20171004
  Transmission Date: 20180321
  Serious: Yes (Other)
  Sender: FDA-Public Use
  Company Number: US-BAYER-2017-182105

PATIENT
  Age: 94 Year
  Sex: Female
  Weight: 56 kg

DRUGS (14)
  1. TYLENOL [Concomitant]
     Active Substance: ACETAMINOPHEN
  2. MAGNESIUM [Concomitant]
     Active Substance: MAGNESIUM
  3. ATORVASTATIN [Concomitant]
     Active Substance: ATORVASTATIN
  4. OSTEO BI-FLEX [Concomitant]
     Active Substance: CHONDROITIN SULFATE A\GLUCOSAMINE
  5. VITAMIN B12 [Concomitant]
     Active Substance: CYANOCOBALAMIN
  6. ALEVE [Suspect]
     Active Substance: NAPROXEN SODIUM
     Indication: PAIN
     Dosage: 2 DF, PRN
     Route: 048
     Dates: end: 201709
  7. METFORMIN [Concomitant]
     Active Substance: METFORMIN HYDROCHLORIDE
  8. FISH OIL [Concomitant]
     Active Substance: FISH OIL
  9. VITAMIN D3 [Concomitant]
     Active Substance: CHOLECALCIFEROL
  10. LOSARTAN. [Concomitant]
     Active Substance: LOSARTAN
  11. CENTRUM [Concomitant]
     Active Substance: VITAMINS
  12. APIXABAN [Concomitant]
     Active Substance: APIXABAN
  13. METOPROLOL. [Concomitant]
     Active Substance: METOPROLOL
  14. GLIPIZIDE XL [Concomitant]
     Active Substance: GLIPIZIDE

REACTIONS (7)
  - Cerebrovascular accident [Recovered/Resolved]
  - Transient ischaemic attack [None]
  - Transient ischaemic attack [None]
  - Feeling abnormal [Recovered/Resolved]
  - Transient ischaemic attack [None]
  - Transient ischaemic attack [None]
  - Feeling abnormal [None]

NARRATIVE: CASE EVENT DATE: 201612
